FAERS Safety Report 5207645-X (Version None)
Quarter: 2007Q1

REPORT INFORMATION
  Report Type: 
  Country: None (occurrence: None)
  Receive Date: 20070112
  Receipt Date: 20070103
  Transmission Date: 20070707
  Serious: Yes (Disabling)
  Sender: FDA-Public Use
  Company Number: FR-PFIZER INC-2006144668

PATIENT
  Sex: Female

DRUGS (1)
  1. BEAGYNE [Suspect]

REACTIONS (2)
  - CHONDRODYSTROPHY [None]
  - DRUG EXPOSURE DURING PREGNANCY [None]
